FAERS Safety Report 6362835-8 (Version None)
Quarter: 2009Q3

REPORT INFORMATION
  Report Type: 
  Country: None (occurrence: None)
  Receive Date: 20090919
  Receipt Date: 20090610
  Transmission Date: 20100115
  Serious: No
  Sender: FDA-Public Use
  Company Number: US-ABBOTT-09P-163-0579208-00

PATIENT
  Sex: Female
  Weight: 54.48 kg

DRUGS (3)
  1. HUMIRA [Suspect]
     Indication: RHEUMATOID ARTHRITIS
     Dates: start: 20060921
  2. TYLENOL (CAPLET) [Concomitant]
     Indication: PAIN
  3. NAPROSYN [Concomitant]
     Indication: PAIN

REACTIONS (2)
  - BLOOD COUNT ABNORMAL [None]
  - PAIN [None]
